FAERS Safety Report 7260410-4 (Version None)
Quarter: 2011Q1

REPORT INFORMATION
  Report Type: 
  Country: None (occurrence: None)
  Receive Date: 20110130
  Receipt Date: 20101118
  Transmission Date: 20110831
  Serious: No
  Sender: FDA-Public Use
  Company Number: US-ABBOTT-10P-163-0686609-00

PATIENT
  Age: 30 Year
  Sex: Male
  Weight: 118.04 kg

DRUGS (2)
  1. MELOXICAM [Suspect]
     Indication: ANKYLOSING SPONDYLITIS
     Dosage: WEANING OFF MEDICATION
  2. HUMIRA [Suspect]
     Indication: ANKYLOSING SPONDYLITIS
     Route: 058
     Dates: start: 20101110

REACTIONS (1)
  - MIGRAINE [None]
